FAERS Safety Report 4325297-8 (Version None)
Quarter: 2004Q1

REPORT INFORMATION
  Report Type: 
  Country: None (occurrence: None)
  Receive Date: 20040326
  Receipt Date: 20040326
  Transmission Date: 20041129
  Serious: Yes (Other)
  Sender: FDA-Public Use
  Company Number: None

PATIENT
  Sex: Female
  Weight: 63.5036 kg

DRUGS (1)
  1. BEXTRA [Suspect]
     Indication: BACK PAIN
     Dosage: 20 MG DAILY ORAL
     Route: 048
     Dates: start: 20030905, end: 20031020

REACTIONS (4)
  - HYPERSENSITIVITY [None]
  - RHINITIS [None]
  - SEASONAL ALLERGY [None]
  - WHEEZING [None]
